FAERS Safety Report 14069562 (Version 2)
Quarter: 2017Q4

REPORT INFORMATION
  Report Type: Spontaneous
  Country: IL (occurrence: IL)
  Receive Date: 20171010
  Receipt Date: 20171201
  Transmission Date: 20180321
  Serious: Yes (Other)
  Sender: FDA-Public Use
  Company Number: IL-ASTELLAS-2017US039763

PATIENT
  Sex: Male

DRUGS (3)
  1. BETMIGA [Suspect]
     Active Substance: MIRABEGRON
     Route: 065
  2. BACLOSAL [Suspect]
     Active Substance: BACLOFEN
     Indication: HYPOTONIA
     Dosage: UNK UNK, UNKNOWN FREQ.
     Route: 065
     Dates: start: 201709, end: 201709
  3. BETMIGA [Suspect]
     Active Substance: MIRABEGRON
     Indication: HYPERTONIC BLADDER
     Route: 048
     Dates: start: 201709, end: 201709

REACTIONS (1)
  - Blindness transient [Recovered/Resolved]

NARRATIVE: CASE EVENT DATE: 201709
